FAERS Safety Report 7486402-8 (Version None)
Quarter: 2011Q2

REPORT INFORMATION
  Report Type: 
  Country: None (occurrence: None)
  Receive Date: 20110517
  Receipt Date: 20110506
  Transmission Date: 20111010
  Serious: Yes (Other)
  Sender: FDA-Public Use
  Company Number: KR-PERRIGO-11KR003797

PATIENT
  Age: 80 Year
  Sex: Male

DRUGS (8)
  1. NITRATE [Concomitant]
     Indication: PRODUCT USED FOR UNKNOWN INDICATION
     Dosage: UNK
     Route: 065
  2. CIMETIDINE [Suspect]
     Indication: URTICARIA
     Dosage: UNK
     Route: 048
  3. NICORANDIL [Concomitant]
     Indication: PRODUCT USED FOR UNKNOWN INDICATION
     Dosage: UNK
     Route: 065
  4. TRIFLUSAL [Concomitant]
     Indication: PRODUCT USED FOR UNKNOWN INDICATION
     Dosage: UNK
     Route: 065
  5. CHLORPHENIRAMINE MALEATE [Concomitant]
     Indication: ANAPHYLACTIC REACTION
     Route: 065
  6. BUDESONIDE W/FORMOTEROL FUMARATE [Concomitant]
     Indication: PRODUCT USED FOR UNKNOWN INDICATION
     Dosage: UNK
     Route: 055
  7. CARVEDILOL [Concomitant]
     Indication: PRODUCT USED FOR UNKNOWN INDICATION
     Dosage: UNK
     Route: 065
  8. ACETAMINOPHEN [Concomitant]

REACTIONS (9)
  - ANAPHYLACTIC REACTION [None]
  - CONDITION AGGRAVATED [None]
  - DYSPNOEA [None]
  - SWELLING FACE [None]
  - DIZZINESS [None]
  - CONFUSIONAL STATE [None]
  - BLOOD PRESSURE DECREASED [None]
  - CHEST DISCOMFORT [None]
  - WHEEZING [None]
